FAERS Safety Report 23295061 (Version 1)
Quarter: 2023Q4

REPORT INFORMATION
  Report Type: Spontaneous
  Country: KR (occurrence: KR)
  Receive Date: 20231213
  Receipt Date: 20231213
  Transmission Date: 20240109
  Serious: No
  Sender: FDA-Public Use
  Company Number: KR-ALKEM LABORATORIES LIMITED-DE-ALKEM-2023-10403

PATIENT
  Sex: Female

DRUGS (6)
  1. LEVETIRACETAM [Suspect]
     Active Substance: LEVETIRACETAM
     Indication: Leukoencephalopathy
     Dosage: UNK
     Route: 065
  2. LEVETIRACETAM [Suspect]
     Active Substance: LEVETIRACETAM
     Indication: Hashimoto^s encephalopathy
  3. VALPROATE [Suspect]
     Active Substance: VALPROIC ACID
     Indication: Hashimoto^s encephalopathy
     Dosage: UNK
     Route: 065
  4. VALPROATE [Suspect]
     Active Substance: VALPROIC ACID
     Indication: Leukoencephalopathy
  5. PHENYTOIN [Suspect]
     Active Substance: PHENYTOIN
     Indication: Hashimoto^s encephalopathy
     Dosage: UNK
     Route: 065
  6. PHENYTOIN [Suspect]
     Active Substance: PHENYTOIN
     Indication: Leukoencephalopathy

REACTIONS (1)
  - Drug ineffective [Unknown]
